FAERS Safety Report 5989035-5 (Version None)
Quarter: 2008Q4

REPORT INFORMATION
  Report Type: 
  Country: None (occurrence: None)
  Receive Date: 20081210
  Receipt Date: 20081205
  Transmission Date: 20090506
  Serious: Yes (Other)
  Sender: FDA-Public Use
  Company Number: B0549666A

PATIENT
  Age: 22 Year
  Sex: Female

DRUGS (7)
  1. NABUMETONE [Suspect]
     Indication: ARTHRALGIA
     Route: 048
     Dates: start: 20081002
  2. IXPRIM [Suspect]
     Indication: ARTHRALGIA
     Route: 048
     Dates: start: 20081002, end: 20081017
  3. INIPOMP [Suspect]
     Indication: ARTHRALGIA
     Route: 048
     Dates: start: 20081017
  4. METHYLPREDNISOLONE 16MG TAB [Concomitant]
     Dates: start: 19970101
  5. CORTANCYL [Concomitant]
  6. ENDOXAN [Concomitant]
     Dates: start: 19970101
  7. PLAQUENIL [Concomitant]
     Indication: ARTHRALGIA
     Dosage: 2TAB PER DAY
     Dates: start: 20080601

REACTIONS (5)
  - BLISTER [None]
  - OEDEMA [None]
  - PRURITUS [None]
  - PYREXIA [None]
  - RASH ERYTHEMATOUS [None]
